FAERS Safety Report 23071164 (Version 2)
Quarter: 2023Q4

REPORT INFORMATION
  Report Type: Spontaneous
  Country: US (occurrence: US)
  Receive Date: 20231016
  Receipt Date: 20231107
  Transmission Date: 20240110
  Serious: Yes (Other)
  Sender: FDA-Public Use
  Company Number: US-TAKEDA-2023TUS097325

PATIENT
  Age: 18 Year
  Sex: Female
  Weight: 58 kg

DRUGS (6)
  1. ADDERALL XR [Suspect]
     Active Substance: AMPHETAMINE ASPARTATE\AMPHETAMINE SULFATE\DEXTROAMPHETAMINE SACCHARATE\DEXTROAMPHETAMINE SULFATE
     Indication: Attention deficit hyperactivity disorder
     Dosage: 5 MILLIGRAM, QD
     Route: 065
     Dates: start: 202112
  2. ADDERALL XR [Suspect]
     Active Substance: AMPHETAMINE ASPARTATE\AMPHETAMINE SULFATE\DEXTROAMPHETAMINE SACCHARATE\DEXTROAMPHETAMINE SULFATE
     Dosage: 20 MILLIGRAM, QD
     Route: 065
     Dates: start: 2022
  3. ADDERALL XR [Suspect]
     Active Substance: AMPHETAMINE ASPARTATE\AMPHETAMINE SULFATE\DEXTROAMPHETAMINE SACCHARATE\DEXTROAMPHETAMINE SULFATE
     Dosage: 20 MILLIGRAM, QD
     Route: 065
  4. MYDAYIS [Suspect]
     Active Substance: AMPHETAMINE ASPARTATE\AMPHETAMINE SULFATE\DEXTROAMPHETAMINE SACCHARATE\DEXTROAMPHETAMINE SULFATE
     Indication: Attention deficit hyperactivity disorder
     Dosage: 25 MILLIGRAM, QD
     Route: 065
     Dates: start: 202301, end: 20230520
  5. DEXTROAMPHET SACCHARAT, AMPHET ASPARTATE, DEXTROAMPHET SULFATE AND AMP [Suspect]
     Active Substance: AMPHETAMINE ASPARTATE\AMPHETAMINE ASPARTATE MONOHYDRATE\AMPHETAMINE SULFATE\DEXTROAMPHETAMINE SACCHA
     Indication: Product used for unknown indication
     Dosage: UNK
     Route: 065
     Dates: start: 202306, end: 202307
  6. MIRENA [Concomitant]
     Active Substance: LEVONORGESTREL
     Dosage: UNK
     Dates: start: 202305

REACTIONS (16)
  - Mental impairment [Unknown]
  - Drug ineffective [Unknown]
  - Fatigue [Unknown]
  - Sleep disorder [Unknown]
  - Apathy [Unknown]
  - Heart rate increased [Unknown]
  - Nausea [Unknown]
  - Affective disorder [Unknown]
  - Depressed mood [Unknown]
  - Emotional disorder [Unknown]
  - Insurance issue [Unknown]
  - Diarrhoea [Unknown]
  - Inability to afford medication [Unknown]
  - Drug withdrawal syndrome [Not Recovered/Not Resolved]
  - Product use issue [Unknown]
  - Product dose omission issue [Unknown]

NARRATIVE: CASE EVENT DATE: 20231002
